FAERS Safety Report 19567154 (Version 1)
Quarter: 2021Q3

REPORT INFORMATION
  Report Type: Spontaneous
  Country: IT (occurrence: IT)
  Receive Date: 20210716
  Receipt Date: 20210716
  Transmission Date: 20211014
  Serious: Yes (Life-Threatening, Hospitalization)
  Sender: FDA-Public Use
  Company Number: IT-MYLANLABS-2021M1042252

PATIENT
  Age: 40 Year
  Sex: Female

DRUGS (4)
  1. LIDOCAINE. [Suspect]
     Active Substance: LIDOCAINE
     Indication: VENTRICULAR ARRHYTHMIA
     Dosage: UNK
     Route: 065
     Dates: start: 2020
  2. AMIODARONE [Suspect]
     Active Substance: AMIODARONE
     Indication: VENTRICULAR ARRHYTHMIA
     Dosage: UNK
     Route: 042
     Dates: start: 2020
  3. ESMOLOL [Suspect]
     Active Substance: ESMOLOL HYDROCHLORIDE
     Indication: VENTRICULAR ARRHYTHMIA
     Dosage: UNK
     Route: 042
     Dates: start: 2020
  4. AMIODARONE MYLAN [Suspect]
     Active Substance: AMIODARONE
     Indication: AUTOIMMUNE MYOCARDITIS
     Dosage: UNK
     Route: 065
     Dates: start: 2015

REACTIONS (4)
  - Chronic kidney disease [Recovered/Resolved]
  - Off label use [Unknown]
  - Drug ineffective [Unknown]
  - Thyroid disorder [Recovered/Resolved]

NARRATIVE: CASE EVENT DATE: 2020
